FAERS Safety Report 9405259 (Version 1)
Quarter: 2013Q3

REPORT INFORMATION
  Report Type: Report from Study
  Country: FR (occurrence: FR)
  Receive Date: 20130717
  Receipt Date: 20130717
  Transmission Date: 20140515
  Serious: Yes (Death, Other)
  Sender: FDA-Public Use
  Company Number: FR-GENZYME-CAMP-1003025

PATIENT
  Sex: Male
  Weight: 84 kg

DRUGS (5)
  1. CAMPATH [Suspect]
     Indication: MYCOSIS FUNGOIDES
     Dosage: 30 MG, 01 INJECTION PER WEEK
     Route: 058
     Dates: start: 20130430, end: 20130515
  2. CAMPATH [Suspect]
     Dosage: 30 MG, 1X/W
     Route: 058
     Dates: start: 20130525, end: 20130529
  3. CAMPATH [Suspect]
     Dosage: 30 MG, 1X/W
     Route: 058
     Dates: start: 20130619, end: 20130626
  4. TRIATEC [Concomitant]
     Indication: PRODUCT USED FOR UNKNOWN INDICATION
     Dosage: 2.5 MG, QD
     Route: 065
  5. ATARAX [Concomitant]
     Indication: PRODUCT USED FOR UNKNOWN INDICATION
     Dosage: 100 MG, QD
     Route: 065

REACTIONS (4)
  - Septic shock [Fatal]
  - Pneumonia [Fatal]
  - Neutropenia [Unknown]
  - Device related infection [Unknown]
